APPROVED DRUG PRODUCT: BENZTROPINE MESYLATE
Active Ingredient: BENZTROPINE MESYLATE
Strength: 1MG/ML
Dosage Form/Route: INJECTABLE;INJECTION
Application: A091152 | Product #001
Applicant: LUITPOLD PHARMACEUTICALS INC
Approved: Mar 29, 2010 | RLD: No | RS: No | Type: DISCN